FAERS Safety Report 11230763 (Version 1)
Quarter: 2015Q2

REPORT INFORMATION
  Report Type: Spontaneous
  Country: GB (occurrence: None)
  Receive Date: 20150629
  Receipt Date: 20150629
  Transmission Date: 20150821
  Serious: No
  Sender: FDA-Public Use
  Company Number: PR 11272

PATIENT
  Age: 71 Year
  Sex: Female

DRUGS (2)
  1. COSOPT [Suspect]
     Active Substance: DORZOLAMIDE HYDROCHLORIDE\TIMOLOL MALEATE
  2. MONOPROST (LATANOPROST) [Concomitant]

REACTIONS (3)
  - Surgery [None]
  - Product packaging issue [None]
  - Hypermetropia [None]

NARRATIVE: CASE EVENT DATE: 2015
